FAERS Safety Report 10868794 (Version 1)
Quarter: 2015Q1

REPORT INFORMATION
  Report Type: Spontaneous
  Country: US (occurrence: US)
  Receive Date: 20150225
  Receipt Date: 20150225
  Transmission Date: 20150721
  Serious: No
  Sender: FDA-Public Use
  Company Number: US-MYLANLABS-2014SP001469

PATIENT
  Sex: Female

DRUGS (9)
  1. VANCOMYCIN [Suspect]
     Active Substance: VANCOMYCIN
  2. CEFALEXIN [Suspect]
     Active Substance: CEPHALEXIN
  3. LEVAQUIN [Suspect]
     Active Substance: LEVOFLOXACIN
  4. BACTRIM [Suspect]
     Active Substance: SULFAMETHOXAZOLE\TRIMETHOPRIM
  5. METRONIDAZOLE. [Suspect]
     Active Substance: METRONIDAZOLE
  6. DOXYCYCLINE. [Suspect]
     Active Substance: DOXYCYCLINE
  7. ATROVENT [Concomitant]
     Active Substance: IPRATROPIUM BROMIDE
  8. ALBUTEROL SULFATE. [Concomitant]
     Active Substance: ALBUTEROL SULFATE
  9. XANAX [Concomitant]
     Active Substance: ALPRAZOLAM

REACTIONS (1)
  - Drug hypersensitivity [Unknown]
